FAERS Safety Report 5647026-8 (Version None)
Quarter: 2008Q1

REPORT INFORMATION
  Report Type: 
  Country: None (occurrence: None)
  Receive Date: 20080131
  Receipt Date: 20071010
  Transmission Date: 20080703
  Serious: Yes (Hospitalization)
  Sender: FDA-Public Use
  Company Number: 163-21880-07100734

PATIENT
  Sex: Female

DRUGS (3)
  1. REVLIMID [Suspect]
     Indication: MULTIPLE MYELOMA
     Dosage: 7.5 MG, 1 IN 2 D, ORAL ; 15 MG, 1 IN 1 D, ORAL ; 1 IN 1 D, ORAL
     Route: 048
     Dates: start: 20060821, end: 20061201
  2. REVLIMID [Suspect]
     Indication: MULTIPLE MYELOMA
     Dosage: 7.5 MG, 1 IN 2 D, ORAL ; 15 MG, 1 IN 1 D, ORAL ; 1 IN 1 D, ORAL
     Route: 048
     Dates: start: 20060519
  3. REVLIMID [Suspect]
     Indication: MULTIPLE MYELOMA
     Dosage: 7.5 MG, 1 IN 2 D, ORAL ; 15 MG, 1 IN 1 D, ORAL ; 1 IN 1 D, ORAL
     Route: 048
     Dates: start: 20061215

REACTIONS (1)
  - SPLENIC RUPTURE [None]
